FAERS Safety Report 12209994 (Version 1)
Quarter: 2016Q1

REPORT INFORMATION
  Report Type: Spontaneous
  Country: US (occurrence: None)
  Receive Date: 20160323
  Receipt Date: 20160323
  Transmission Date: 20160526
  Serious: No
  Sender: FDA-Public Use
  Company Number: None

PATIENT
  Age: 74 Year
  Sex: Male
  Weight: 107.05 kg

DRUGS (1)
  1. OLODATEROL [Suspect]
     Active Substance: OLODATEROL
     Indication: ASTHMA
     Dosage: 2 PUFF(S) EVERY DAY PO
     Route: 048
     Dates: start: 20150723, end: 20160115

REACTIONS (3)
  - Asthma [None]
  - Treatment noncompliance [None]
  - Wheezing [None]

NARRATIVE: CASE EVENT DATE: 20160115
